FAERS Safety Report 23744484 (Version 1)
Quarter: 2024Q2

REPORT INFORMATION
  Report Type: Spontaneous
  Country: CN (occurrence: CN)
  Receive Date: 20240415
  Receipt Date: 20240415
  Transmission Date: 20240716
  Serious: Yes (Hospitalization)
  Sender: FDA-Public Use
  Company Number: CN-PFIZER INC-PV202400048141

PATIENT
  Age: 28 Year
  Sex: Female
  Weight: 58 kg

DRUGS (2)
  1. METHOTREXATE SODIUM [Suspect]
     Active Substance: METHOTREXATE SODIUM
     Indication: Gestational trophoblastic tumour
     Dosage: 0.079 G, 1X/DAY
     Route: 030
     Dates: start: 20240331, end: 20240331
  2. METHOTREXATE SODIUM [Suspect]
     Active Substance: METHOTREXATE SODIUM
     Indication: Chemotherapy

REACTIONS (1)
  - Granulocyte count decreased [Unknown]

NARRATIVE: CASE EVENT DATE: 20240408
